FAERS Safety Report 8144075-5 (Version None)
Quarter: 2012Q1

REPORT INFORMATION
  Report Type: 
  Country: None (occurrence: None)
  Receive Date: 20120217
  Receipt Date: 20120208
  Transmission Date: 20120608
  Serious: Yes (Hospitalization, Other)
  Sender: FDA-Public Use
  Company Number: US-SANOFI-AVENTIS-2012SA002251

PATIENT
  Age: 79 Year
  Sex: Female

DRUGS (2)
  1. SOLOSTAR [Suspect]
  2. LANTUS [Suspect]
     Dosage: DOSE:30 UNIT(S)
     Route: 058

REACTIONS (5)
  - CARDIAC DISORDER [None]
  - HOSPITALISATION [None]
  - LIPODYSTROPHY ACQUIRED [None]
  - SKIN CANCER [None]
  - INJECTION SITE HAEMORRHAGE [None]
